FAERS Safety Report 21792035 (Version 1)
Quarter: 2022Q4

REPORT INFORMATION
  Report Type: Spontaneous
  Country: GB (occurrence: GB)
  Receive Date: 20221229
  Receipt Date: 20221229
  Transmission Date: 20230112
  Serious: Yes (Disabling, Other)
  Sender: FDA-Public Use
  Company Number: GB-MHRA-MED-202212141336077990-NWKLZ

PATIENT
  Age: 41 Year
  Sex: Female

DRUGS (1)
  1. SERTRALINE [Suspect]
     Active Substance: SERTRALINE HYDROCHLORIDE
     Indication: Depression
     Dosage: 100MG ONCE A DAY AT NIGHT; ;
     Route: 065
     Dates: start: 2013

REACTIONS (1)
  - Fatigue [Recovering/Resolving]
